FAERS Safety Report 5685065-1 (Version None)
Quarter: 2008Q1

REPORT INFORMATION
  Report Type: 
  Country: None (occurrence: None)
  Receive Date: 20080328
  Receipt Date: 20000410
  Transmission Date: 20080703
  Serious: Yes (Death)
  Sender: FDA-Public Use
  Company Number: US-ROCHE-234107

PATIENT
  Sex: Male

DRUGS (1)
  1. ROCEPHIN [Suspect]
     Route: 042
     Dates: start: 19940101, end: 19940101

REACTIONS (1)
  - DEATH [None]
